FAERS Safety Report 15710972 (Version 1)
Quarter: 2018Q4

REPORT INFORMATION
  Report Type: Spontaneous
  Country: US (occurrence: US)
  Receive Date: 20181211
  Receipt Date: 20181211
  Transmission Date: 20190205
  Serious: No
  Sender: FDA-Public Use
  Company Number: US-PERNIX THERAPEUTICS-US-2018PER001670

PATIENT

DRUGS (1)
  1. ZOHYDRO [Suspect]
     Active Substance: HYDROCODONE BITARTRATE
     Indication: NECK INJURY
     Dosage: 20 MG, BID
     Route: 048
     Dates: start: 2017, end: 2018

REACTIONS (2)
  - Drug withdrawal syndrome [Unknown]
  - Product dose omission [Unknown]

NARRATIVE: CASE EVENT DATE: 2018
